FAERS Safety Report 21796046 (Version 2)
Quarter: 2022Q4

REPORT INFORMATION
  Report Type: Report from Study
  Country: US (occurrence: US)
  Receive Date: 20221229
  Receipt Date: 20221230
  Transmission Date: 20230112
  Serious: No
  Sender: FDA-Public Use
  Company Number: US-ABBVIE-4235386

PATIENT
  Sex: Female

DRUGS (1)
  1. HUMIRA [Suspect]
     Active Substance: ADALIMUMAB
     Indication: Rheumatoid arthritis
     Dosage: CITRATE FREE
     Route: 058

REACTIONS (5)
  - Drug eruption [Recovering/Resolving]
  - Skin irritation [Recovering/Resolving]
  - Pruritus allergic [Unknown]
  - Injection site rash [Unknown]
  - Injection site irritation [Recovering/Resolving]

NARRATIVE: CASE EVENT DATE: 20220101
